FAERS Safety Report 10276165 (Version 2)
Quarter: 2014Q3

REPORT INFORMATION
  Report Type: Spontaneous
  Country: BR (occurrence: BR)
  Receive Date: 20140703
  Receipt Date: 20140703
  Transmission Date: 20150326
  Serious: Yes (Other)
  Sender: FDA-Public Use
  Company Number: PHHY2014BR069073

PATIENT
  Age: 77 Year
  Sex: Male

DRUGS (8)
  1. DIOVAN [Suspect]
     Active Substance: VALSARTAN
     Indication: HYPERTENSION
     Dosage: 160 MG, UNK
  2. SOMALGIN [Concomitant]
     Active Substance: ASPIRIN\DIHYDROXYALUMINUM AMINOACETATE ANHYDROUS\MAGNESIUM CARBONATE
     Indication: CARDIOVASCULAR DISORDER
     Dosage: 100 MG, DAILY
     Route: 048
  3. BUPROPION [Concomitant]
     Active Substance: BUPROPION
     Indication: DEPRESSION
     Dosage: 40 MG, DAILY
     Route: 048
     Dates: start: 20140602
  4. DIOVAN [Suspect]
     Active Substance: VALSARTAN
     Dosage: 320 MG, QD (IN THE MORNING)
     Route: 048
     Dates: end: 20140529
  5. AMLODIPINE [Suspect]
     Active Substance: AMLODIPINE BESYLATE
     Indication: HYPERTENSION
     Dosage: 10 MG, DAILY
     Route: 048
  6. SIMVASTATIN. [Concomitant]
     Active Substance: SIMVASTATIN
     Indication: BLOOD CHOLESTEROL ABNORMAL
     Dosage: 20 MG, DAILY
     Route: 048
  7. OMEPRAZOLE. [Concomitant]
     Active Substance: OMEPRAZOLE
     Indication: GASTRITIS
     Dosage: 20 MG, DAILY
     Route: 048
  8. CITALOPRAM [Concomitant]
     Active Substance: CITALOPRAM HYDROBROMIDE
     Indication: DEPRESSION
     Dosage: 20 MG, DAILY
     Route: 048

REACTIONS (4)
  - Hypertension [Recovered/Resolved]
  - Oedema peripheral [Recovered/Resolved]
  - Drug ineffective [Unknown]
  - Headache [Recovered/Resolved]
